FAERS Safety Report 6126344-3 (Version None)
Quarter: 2009Q1

REPORT INFORMATION
  Report Type: 
  Country: None (occurrence: None)
  Receive Date: 20090320
  Receipt Date: 20090312
  Transmission Date: 20090719
  Serious: Yes (Other)
  Sender: FDA-Public Use
  Company Number: US-AMGEN-KDL333259

PATIENT
  Sex: Female

DRUGS (4)
  1. ENBREL [Suspect]
     Indication: RHEUMATOID ARTHRITIS
     Route: 058
     Dates: start: 19990101, end: 20090207
  2. KINERET [Suspect]
     Indication: RHEUMATOID ARTHRITIS
     Dates: start: 20061201, end: 20070101
  3. PLAQUENIL [Concomitant]
     Route: 048
  4. METHOTREXATE [Concomitant]

REACTIONS (20)
  - ANXIETY [None]
  - ASTHENIA [None]
  - CHEST PAIN [None]
  - DRUG INEFFECTIVE [None]
  - DYSPHONIA [None]
  - ERYTHEMA [None]
  - HEADACHE [None]
  - HYPERSENSITIVITY [None]
  - HYPOAESTHESIA [None]
  - IMPETIGO [None]
  - INJECTION SITE MASS [None]
  - INJECTION SITE REACTION [None]
  - LOCAL SWELLING [None]
  - OEDEMA PERIPHERAL [None]
  - PHARYNGEAL OEDEMA [None]
  - PRURITUS [None]
  - SINUSITIS [None]
  - STAPHYLOCOCCAL INFECTION [None]
  - URTICARIA [None]
  - WEIGHT DECREASED [None]
